FAERS Safety Report 6980252-4 (Version None)
Quarter: 2010Q3

REPORT INFORMATION
  Report Type: 
  Country: None (occurrence: None)
  Receive Date: 20100908
  Receipt Date: 20100823
  Transmission Date: 20110219
  Serious: Yes (Hospitalization)
  Sender: FDA-Public Use
  Company Number: THQ2010A02492

PATIENT
  Age: 79 Year
  Sex: Male

DRUGS (9)
  1. ACTOS [Suspect]
     Indication: DIABETES MELLITUS
     Dosage: 30 MG (30 MG, 1 IN 24 HR) PER ORAL
     Route: 048
     Dates: start: 20080101
  2. SPIRONOLACTONE [Concomitant]
  3. GLIMEPIRIDE [Concomitant]
  4. ACETYLSALICYLIC ACID (ASPIRINA PREVENT) (ACETYLSALICYLIC ACID) [Concomitant]
  5. CLONTDINE HYDROCHLORIDE [Concomitant]
  6. VILDAGLIPTIN (ORAL ANTTDIABETICS) [Concomitant]
  7. AMLODIPINE, BENAZEPRIL (PRESS PLUS)(BENAZEPRIL, AMLODIPINR) [Concomitant]
  8. SIMVASTATIN [Concomitant]
  9. RUTOSIDE, MIROTON, AESCULUS HIPPOCASTANUM SEED [Concomitant]

REACTIONS (1)
  - BLOOD GLUCOSE INCREASED [None]
